FAERS Safety Report 9390580 (Version 3)
Quarter: 2013Q3

REPORT INFORMATION
  Report Type: Spontaneous
  Country: US (occurrence: US)
  Receive Date: 20130709
  Receipt Date: 20130819
  Transmission Date: 20140515
  Serious: No
  Sender: FDA-Public Use
  Company Number: US-BIOGENIDEC-2013BI060042

PATIENT
  Age: 52 Year
  Sex: Female

DRUGS (1)
  1. TYSABRI [Suspect]
     Indication: MULTIPLE SCLEROSIS
     Route: 042
     Dates: start: 20090727

REACTIONS (10)
  - Tremor [Recovered/Resolved]
  - Muscle twitching [Recovered/Resolved]
  - Mental disorder [Recovered/Resolved]
  - Vision blurred [Recovered/Resolved]
  - Impaired driving ability [Recovered/Resolved]
  - Mental impairment [Recovered/Resolved]
  - Dysgraphia [Recovered/Resolved]
  - Speech disorder [Recovered/Resolved]
  - Multiple sclerosis relapse [Recovered/Resolved]
  - Multiple sclerosis [Unknown]
